FAERS Safety Report 7406091-8 (Version None)
Quarter: 2011Q2

REPORT INFORMATION
  Report Type: 
  Country: None (occurrence: None)
  Receive Date: 20110401
  Receipt Date: 20110321
  Transmission Date: 20111010
  Serious: Yes (Other)
  Sender: FDA-Public Use
  Company Number: DSM-2011-00321

PATIENT
  Age: 61 Year
  Sex: Male

DRUGS (1)
  1. AMLODIPINE BESYLATE AND OLMESARTAN MEDOXOMIL [Suspect]
     Indication: HYPERTENSION
     Dosage: 40/5 MG (1 IN 1 D), ORAL
     Route: 048
     Dates: start: 20100803

REACTIONS (1)
  - GINGIVAL HYPERPLASIA [None]
